FAERS Safety Report 8825390 (Version 4)
Quarter: 2013Q3

REPORT INFORMATION
  Report Type: Report from Study
  Country: JP (occurrence: JP)
  Receive Date: 20121004
  Receipt Date: 20130909
  Transmission Date: 20140515
  Serious: Yes (Hospitalization)
  Sender: FDA-Public Use
  Company Number: JP-VERTEX PHARMACEUTICAL INC.-2012-022182

PATIENT
  Age: 69 Year
  Sex: Male

DRUGS (21)
  1. VX-950 (TELAPREVIR) [Suspect]
     Indication: CHRONIC HEPATITIS C
     Dosage: 1500 MG, QD
     Route: 048
     Dates: start: 20120904, end: 20120920
  2. VX-950 (TELAPREVIR) [Suspect]
     Dosage: 1000 MG, QD
     Route: 048
     Dates: start: 20120920, end: 20120926
  3. REBETOL [Suspect]
     Indication: CHRONIC HEPATITIS C
     Dosage: 400 MG, QD
     Route: 048
     Dates: start: 20120904, end: 20120927
  4. REBETOL [Suspect]
     Dosage: 600 MG, QD
     Route: 048
     Dates: start: 20121013, end: 20121129
  5. REBETOL [Suspect]
     Dosage: 400 MG, QD
     Route: 048
     Dates: start: 20121130, end: 20121206
  6. PEGINTERFERON ALFA-2B [Concomitant]
     Dosage: 1.5 ?G/KG, QW
     Route: 058
     Dates: start: 20120904, end: 20120927
  7. PEGINTERFERON ALFA-2B [Concomitant]
     Dosage: 1 ?G/KG, QW
     Route: 058
     Dates: start: 20121013, end: 20121108
  8. PEGINTERFERON ALFA-2B [Concomitant]
     Dosage: 1.4 ?G/KG, QW
     Route: 058
     Dates: start: 20121115
  9. MUCOSTA [Concomitant]
     Dosage: 300 MG, QD
     Route: 048
  10. AMARYL [Concomitant]
     Dosage: 4 MG, QD
     Route: 048
  11. AMARYL [Concomitant]
     Dosage: 2 MG, QD
     Route: 048
  12. PARIET [Concomitant]
     Dosage: 10 MG, QD
     Route: 048
  13. WARFARIN [Concomitant]
     Dosage: 4 MG, QD
     Route: 048
  14. FERROMIA [Concomitant]
     Dosage: 200 MG, QD
     Route: 048
  15. NORVASC [Concomitant]
     Dosage: 5 MG, QD
     Route: 048
  16. LANIRAPID [Concomitant]
     Dosage: 0.1 MG, QD
     Route: 048
  17. URSO [Concomitant]
     Dosage: 300 MG, QD
     Route: 048
  18. DOGMATYL [Concomitant]
     Dosage: 150 MG, QD
     Route: 048
     Dates: start: 20121012
  19. ALLEGRA [Concomitant]
     Dosage: 20 MG, QD
     Route: 042
     Dates: start: 20120911, end: 20120914
  20. MYSER [Concomitant]
     Dosage: 0.05%, PRN
     Route: 061
     Dates: start: 20120911, end: 20120914
  21. LASIX [Concomitant]
     Dosage: 20 MG, QD
     Route: 042
     Dates: start: 20120927, end: 20120927

REACTIONS (4)
  - Renal disorder [Recovered/Resolved]
  - Ascites [Recovered/Resolved]
  - Cardiac failure [Recovered/Resolved]
  - Hyperuricaemia [Recovered/Resolved]
